FAERS Safety Report 15158673 (Version 2)
Quarter: 2018Q4

REPORT INFORMATION
  Report Type: Spontaneous
  Country: PT (occurrence: PT)
  Receive Date: 20180718
  Receipt Date: 20181008
  Transmission Date: 20190204
  Serious: Yes (Hospitalization, Other)
  Sender: FDA-Public Use
  Company Number: PT-PFIZER INC-2018288604

PATIENT
  Age: 63 Year
  Sex: Female
  Weight: 85 kg

DRUGS (13)
  1. TIOTROPIUM BROMIDE [Concomitant]
     Active Substance: TIOTROPIUM BROMIDE
  2. MONTELUKAST [Concomitant]
     Active Substance: MONTELUKAST SODIUM
  3. ALPRAZOLAM. [Concomitant]
     Active Substance: ALPRAZOLAM
  4. AMINOPHYLLINE. [Concomitant]
     Active Substance: AMINOPHYLLINE
  5. DOCETAXEL PFIZER [Concomitant]
     Active Substance: DOCETAXEL
     Indication: BREAST CANCER
     Dosage: UNK
     Dates: start: 20180306, end: 20180321
  6. EBASTINE [Concomitant]
     Active Substance: EBASTINE
  7. PENTOXIFYLLINE. [Concomitant]
     Active Substance: PENTOXIFYLLINE
  8. METOLAZONE. [Concomitant]
     Active Substance: METOLAZONE
  9. DOCETAXEL. [Suspect]
     Active Substance: DOCETAXEL
     Indication: BREAST CANCER
     Dosage: 145 MG, CYCLIC (EVERY 21 DAYS)
     Route: 042
     Dates: start: 20180228, end: 20180502
  10. FUROSEMIDE. [Concomitant]
     Active Substance: FUROSEMIDE
  11. BUDESONIDE/FORMOTEROL FUMARATE [Concomitant]
     Dosage: 3 DF, 2X/DAY (3 INHALATIONS 2X/DAY)
  12. SIMVASTATIN. [Concomitant]
     Active Substance: SIMVASTATIN
     Dosage: UNK
  13. MIRTAZAPINE. [Concomitant]
     Active Substance: MIRTAZAPINE

REACTIONS (2)
  - Erysipelas [Recovered/Resolved]
  - Febrile neutropenia [Recovered/Resolved]

NARRATIVE: CASE EVENT DATE: 20180511
